FAERS Safety Report 23610456 (Version 2)
Quarter: 2024Q1

REPORT INFORMATION
  Report Type: Report from Study
  Country: CO (occurrence: CO)
  Receive Date: 20240308
  Receipt Date: 20240315
  Transmission Date: 20240409
  Serious: Yes (Hospitalization, Other)
  Sender: FDA-Public Use
  Company Number: CO-SA-SAC20220908000076

PATIENT
  Age: 36 Year
  Sex: Male
  Weight: 65 kg

DRUGS (2)
  1. ALEMTUZUMAB [Suspect]
     Active Substance: ALEMTUZUMAB
     Indication: Multiple sclerosis
     Dosage: 12 MG, QD
     Route: 042
     Dates: start: 20220831, end: 20220904
  2. ALEMTUZUMAB [Suspect]
     Active Substance: ALEMTUZUMAB
     Dosage: 12 MG, QD
     Route: 042
     Dates: start: 20230823, end: 20230825

REACTIONS (9)
  - Multiple sclerosis relapse [Recovered/Resolved]
  - Spinal pain [Not Recovered/Not Resolved]
  - Muscular weakness [Recovered/Resolved]
  - Peripheral coldness [Recovering/Resolving]
  - Pneumonia [Recovering/Resolving]
  - Dyspnoea [Recovering/Resolving]
  - Oxygen saturation decreased [Unknown]
  - Pain in extremity [Recovered/Resolved]
  - Urinary tract infection [Unknown]

NARRATIVE: CASE EVENT DATE: 20220101
